FAERS Safety Report 4918124-9 (Version None)
Quarter: 2006Q1

REPORT INFORMATION
  Report Type: 
  Country: None (occurrence: None)
  Receive Date: 20060221
  Receipt Date: 20051114
  Transmission Date: 20060701
  Serious: Yes (Hospitalization)
  Sender: FDA-Public Use
  Company Number: US-MERCK-0511USA02520

PATIENT
  Age: 60 Year
  Sex: Female
  Weight: 72 kg

DRUGS (1)
  1. VIOXX [Suspect]
     Indication: EPICONDYLITIS
     Route: 048
     Dates: start: 20030601, end: 20040807

REACTIONS (13)
  - ANHEDONIA [None]
  - ANXIETY [None]
  - CARDIAC FAILURE CONGESTIVE [None]
  - CARDIOVASCULAR DISORDER [None]
  - CAROTID ARTERY STENOSIS [None]
  - CEREBROVASCULAR ACCIDENT [None]
  - DEEP VEIN THROMBOSIS [None]
  - HYPERTENSION [None]
  - MYOCARDIAL INFARCTION [None]
  - PULMONARY EMBOLISM [None]
  - RENAL DISORDER [None]
  - RENAL FAILURE [None]
  - THROMBOSIS [None]
